FAERS Safety Report 17411395 (Version 8)
Quarter: 2022Q3

REPORT INFORMATION
  Report Type: Report from Study
  Country: CA (occurrence: CA)
  Receive Date: 20200212
  Receipt Date: 20220722
  Transmission Date: 20221027
  Serious: Yes (Other)
  Sender: FDA-Public Use
  Company Number: CA-BAUSCH-BL-2020-004328

PATIENT
  Age: 54 Year
  Sex: Male

DRUGS (4)
  1. SILIQ [Suspect]
     Active Substance: BRODALUMAB
     Indication: Psoriasis
     Dosage: 210 MG/1.5 ML (AT WEEK 0, 1 AND 2)
     Route: 058
     Dates: start: 20200115, end: 202001
  2. SILIQ [Suspect]
     Active Substance: BRODALUMAB
     Dosage: 210 MG/1.5 ML
     Route: 058
     Dates: start: 202002
  3. SILIQ [Suspect]
     Active Substance: BRODALUMAB
     Dosage: 210 MG/1.5 ML (FROM Q2-WEEKS TO Q-MONTHLY)
     Route: 058
     Dates: start: 2022
  4. SILIQ [Suspect]
     Active Substance: BRODALUMAB
     Dosage: 210 MG/1.5 ML (FROM Q-MONTHLY TO Q 2-WEEKS)
     Route: 058
     Dates: start: 2022

REACTIONS (8)
  - Haematochezia [Not Recovered/Not Resolved]
  - Constipation [Unknown]
  - Abdominal pain upper [Unknown]
  - Malaise [Recovered/Resolved]
  - Psoriasis [Recovering/Resolving]
  - Pharyngitis [Recovering/Resolving]
  - Off label use [Unknown]
  - Patient dissatisfaction with treatment [Unknown]

NARRATIVE: CASE EVENT DATE: 20200101
